FAERS Safety Report 11739700 (Version 2)
Quarter: 2015Q4

REPORT INFORMATION
  Report Type: Spontaneous
  Country: US (occurrence: US)
  Receive Date: 20151110
  Receipt Date: 20151120
  Transmission Date: 20160304
  Serious: No
  Sender: FDA-Public Use
  Company Number: US-ELI_LILLY_AND_COMPANY-US201209002213

PATIENT
  Age: 61 Year
  Sex: Female

DRUGS (1)
  1. FORTEO [Suspect]
     Active Substance: TERIPARATIDE
     Indication: OSTEOPOROSIS
     Dosage: 20 UG, QD
     Dates: start: 20120905

REACTIONS (7)
  - Back pain [Unknown]
  - Dizziness [Not Recovered/Not Resolved]
  - Dysstasia [Unknown]
  - Migraine [Unknown]
  - Pain [Unknown]
  - General physical health deterioration [Unknown]
  - Abdominal pain [Unknown]

NARRATIVE: CASE EVENT DATE: 201209
